FAERS Safety Report 6285144-4 (Version None)
Quarter: 2009Q3

REPORT INFORMATION
  Report Type: 
  Country: None (occurrence: None)
  Receive Date: 20090727
  Receipt Date: 20090528
  Transmission Date: 20100115
  Serious: Yes (Hospitalization, Other)
  Sender: FDA-Public Use
  Company Number: AT-PFIZER INC-2009244138

PATIENT
  Age: 37 Year

DRUGS (7)
  1. ATARAX [Suspect]
     Indication: DEPRESSION
     Dosage: 25 MG, 2X/DAY
     Route: 048
     Dates: start: 20090330, end: 20090403
  2. ATARAX [Suspect]
     Indication: PERSONALITY DISORDER
  3. VENLAFAXINE HCL [Concomitant]
     Dosage: 225 MG, UNK
     Route: 048
     Dates: start: 20080601, end: 20090406
  4. TRITTICO [Concomitant]
     Dosage: 150 MG, UNK
     Route: 048
     Dates: start: 20080601, end: 20090409
  5. LACTULOSE [Concomitant]
     Dosage: 20 G, UNK
     Route: 048
     Dates: start: 20081201
  6. MEXALEN [Concomitant]
     Dosage: 1000 MG, UNK
     Route: 054
     Dates: start: 20090329, end: 20090331
  7. PANTOPRAZOLE [Concomitant]
     Dosage: 20 MG, UNK
     Route: 048
     Dates: start: 20081201

REACTIONS (1)
  - VISION BLURRED [None]
